FAERS Safety Report 8327895-3 (Version None)
Quarter: 2012Q2

REPORT INFORMATION
  Report Type: 
  Country: None (occurrence: None)
  Receive Date: 20120502
  Receipt Date: 20120423
  Transmission Date: 20120825
  Serious: Yes (Hospitalization)
  Sender: FDA-Public Use
  Company Number: JP-BAYER-2012-022494

PATIENT
  Age: 63 Year
  Sex: Male
  Weight: 52 kg

DRUGS (2)
  1. ALDACTONE [Concomitant]
     Dosage: 25 MG, UNK
     Route: 048
  2. SORAFENIB (RAF KINASE INHIBITOR) [Suspect]
     Indication: HEPATIC NEOPLASM MALIGNANT
     Dosage: 200 MG, BID
     Route: 048
     Dates: start: 20090731

REACTIONS (5)
  - FALL [None]
  - RASH [None]
  - CENTRAL NERVOUS SYSTEM NECROSIS [None]
  - CEREBRAL INFARCTION [None]
  - DECREASED APPETITE [None]
